FAERS Safety Report 18206637 (Version 4)
Quarter: 2021Q1

REPORT INFORMATION
  Report Type: Other
  Country: US (occurrence: US)
  Receive Date: 20200828
  Receipt Date: 20210322
  Transmission Date: 20210419
  Serious: Yes (Hospitalization, Other)
  Sender: FDA-Public Use
  Company Number: US-ROCHE-2607885

PATIENT
  Age: 48 Year
  Sex: Female
  Weight: 106.24 kg

DRUGS (18)
  1. ZOFRAN [Concomitant]
     Active Substance: ONDANSETRON HYDROCHLORIDE
     Dosage: PRN FOR 30 DAYS
  2. PRIMIDONE. [Concomitant]
     Active Substance: PRIMIDONE
  3. VERAPAMIL [Concomitant]
     Active Substance: VERAPAMIL HYDROCHLORIDE
     Indication: HYPERTENSION
     Dosage: NO
     Dates: start: 202005
  4. PROMETHAZINE [Concomitant]
     Active Substance: PROMETHAZINE HYDROCHLORIDE
     Dosage: PRN FOR 30 DAYS
     Route: 048
  5. ZOFRAN [Concomitant]
     Active Substance: ONDANSETRON HYDROCHLORIDE
  6. DEPAKOTE ER [Concomitant]
     Active Substance: DIVALPROEX SODIUM
  7. TRAMADOL. [Concomitant]
     Active Substance: TRAMADOL
  8. CYCLOBENZAPRINE. [Concomitant]
     Active Substance: CYCLOBENZAPRINE
  9. OCREVUS [Suspect]
     Active Substance: OCRELIZUMAB
     Indication: MULTIPLE SCLEROSIS
  10. REQUIP [Concomitant]
     Active Substance: ROPINIROLE HYDROCHLORIDE
     Dosage: EVERY NIGHT FOR 90 DAYS
  11. MECLIZINE [Concomitant]
     Active Substance: MECLIZINE HYDROCHLORIDE
     Dosage: PRN FOR 30 DAYS
  12. OCREVUS [Suspect]
     Active Substance: OCRELIZUMAB
     Indication: RELAPSING-REMITTING MULTIPLE SCLEROSIS
     Dosage: DATE OF TREATMENT: 09/DEC/2019 AND 11/JUN/2020
     Route: 042
     Dates: start: 20191125
  13. SPIRONOLACTONE. [Concomitant]
     Active Substance: SPIRONOLACTONE
     Indication: HYPERTENSION
     Dosage: YES
     Route: 048
     Dates: start: 202005
  14. NORVASC [Concomitant]
     Active Substance: AMLODIPINE BESYLATE
     Indication: HYPERTENSION
     Dosage: YES
     Route: 048
     Dates: start: 202005
  15. METOPROLOL. [Concomitant]
     Active Substance: METOPROLOL
     Indication: HYPERTENSION
     Dosage: NO
     Dates: start: 202005
  16. BELSOMRA [Concomitant]
     Active Substance: SUVOREXANT
  17. AMPYRA [Concomitant]
     Active Substance: DALFAMPRIDINE
  18. AMBIEN [Concomitant]
     Active Substance: ZOLPIDEM TARTRATE

REACTIONS (11)
  - Drug ineffective [Unknown]
  - JC polyomavirus test positive [Unknown]
  - Multiple sclerosis [Unknown]
  - Migraine [Unknown]
  - Asthenia [Unknown]
  - Vomiting [Unknown]
  - Pain [Unknown]
  - Multiple sclerosis relapse [Recovered/Resolved]
  - Heart rate decreased [Recovered/Resolved]
  - Fatigue [Unknown]
  - Amnesia [Unknown]

NARRATIVE: CASE EVENT DATE: 20200502
